FAERS Safety Report 11183189 (Version 2)
Quarter: 2015Q2

REPORT INFORMATION
  Report Type: Spontaneous
  Country: JP (occurrence: JP)
  Receive Date: 20150611
  Receipt Date: 20150619
  Transmission Date: 20150821
  Serious: Yes (Death, Life-Threatening, Other)
  Sender: FDA-Public Use
  Company Number: JP-009507513-1506JPN004790

PATIENT
  Age: 21 Year
  Sex: Female
  Weight: 50 kg

DRUGS (25)
  1. AMPHOTERICIN B. [Concomitant]
     Active Substance: AMPHOTERICIN B
     Indication: FUNGAL INFECTION
     Dosage: 150 MG, DAILY, DIVIDED DOSE FREQUENCY UNKNOWN
     Route: 041
     Dates: start: 20150403, end: 20150406
  2. PREDONINE [Concomitant]
     Active Substance: PREDNISOLONE\PREDNISOLONE ACETATE\PREDNISOLONE SODIUM SUCCINATE
     Indication: GRAFT VERSUS HOST DISEASE
     Dosage: 50 MG, BID
     Route: 042
     Dates: start: 20150401, end: 20150507
  3. PRIMPERAN [Concomitant]
     Active Substance: METOCLOPRAMIDE HYDROCHLORIDE
     Indication: GASTROINTESTINAL MOTILITY DISORDER
     Dosage: 5 MG, BID
     Route: 048
     Dates: start: 20150327, end: 20150423
  4. CELLCEPT [Concomitant]
     Active Substance: MYCOPHENOLATE MOFETIL\MYCOPHENOLATE MOFETIL HYDROCHLORIDE
     Indication: GRAFT VERSUS HOST DISEASE
     Dosage: 250 MG, TID
     Route: 048
     Dates: start: 20150402, end: 20150507
  5. HERBAL NOS [Concomitant]
     Active Substance: HERBALS
     Indication: GASTROINTESTINAL MOTILITY DISORDER
     Dosage: 2.5 G, TID
     Route: 048
     Dates: start: 20150406, end: 20150507
  6. PROGRAF [Concomitant]
     Active Substance: TACROLIMUS\TACROLIMUS ANHYDROUS
     Indication: GRAFT VERSUS HOST DISEASE
     Dosage: 2 MG, QD
     Route: 042
     Dates: start: 20150209, end: 20150508
  7. PRECEDEX [Concomitant]
     Active Substance: DEXMEDETOMIDINE HYDROCHLORIDE
     Indication: SEDATION
     Dosage: 400 MICROGRAM, QD
     Route: 042
     Dates: start: 20150403, end: 20150507
  8. DINOPROST [Concomitant]
     Active Substance: DINOPROST
     Indication: GASTROINTESTINAL MOTILITY DISORDER
     Dosage: 500 MICROGRAM, QD
     Route: 042
     Dates: start: 20150404, end: 20150408
  9. FOSCAVIR [Concomitant]
     Active Substance: FOSCARNET SODIUM
     Indication: CYTOMEGALOVIRUS INFECTION
     Dosage: 1.8 G, BID
     Route: 042
     Dates: start: 20150407, end: 20150414
  10. CANDESARTAN CILEXETIL. [Concomitant]
     Active Substance: CANDESARTAN CILEXETIL
     Indication: HYPERTENSION
     Dosage: 8 MG, QD
     Route: 048
     Dates: start: 20150203, end: 20150416
  11. FAMOTIDINE. [Concomitant]
     Active Substance: FAMOTIDINE
     Indication: GASTRITIS PROPHYLAXIS
     Dosage: 40 MG, QD
     Route: 048
     Dates: start: 20150409, end: 20150416
  12. VANCOMYCIN [Concomitant]
     Active Substance: VANCOMYCIN
     Indication: BACTERIAL INFECTION
     Dosage: 1 G, BID
     Route: 042
     Dates: start: 20150409, end: 20150411
  13. ROZEREM [Concomitant]
     Active Substance: RAMELTEON
     Indication: INSOMNIA
     Dosage: 8 MG, QD
     Route: 048
     Dates: start: 20150327, end: 20150424
  14. RECOMODULIN [Concomitant]
     Active Substance: THROMBOMODULIN ALFA
     Indication: DISSEMINATED INTRAVASCULAR COAGULATION
     Dosage: 1.9 THOUSAND-MILLION UNIT, QD
     Route: 042
     Dates: start: 20150409, end: 20150409
  15. FILGRASTIM [Concomitant]
     Active Substance: FILGRASTIM
     Indication: NEUTROPENIA
     Dosage: 300 MICROGRAM, QD
     Route: 042
     Dates: start: 20150402, end: 20150507
  16. FINIBAX [Concomitant]
     Active Substance: DORIPENEM MONOHYDRATE
     Indication: BACTERIAL INFECTION
     Dosage: 0.5 G, TID
     Route: 042
     Dates: start: 20150402, end: 20150409
  17. CANCIDAS [Suspect]
     Active Substance: CASPOFUNGIN ACETATE
     Indication: FUNGAL INFECTION
     Dosage: 70 MG, QD
     Route: 041
     Dates: start: 20150407, end: 20150407
  18. ITRACONAZOLE. [Concomitant]
     Active Substance: ITRACONAZOLE
     Indication: FUNGAL INFECTION
     Dosage: 20 ML, DAILY, DIVIDED DOSE FREQUENCY UNKNOWN, , FORMULATION POR (PERORAL PREPARATION)
     Route: 048
     Dates: start: 20150327, end: 20150402
  19. DAI-KENCHU-TO [Concomitant]
     Active Substance: MALTOSE
     Indication: GASTROINTESTINAL MOTILITY DISORDER
     Dosage: 2.5 G, TID
     Route: 048
     Dates: start: 20150327, end: 20150507
  20. URSO [Concomitant]
     Active Substance: URSODIOL
     Indication: PROPHYLAXIS AGAINST GRAFT VERSUS HOST DISEASE
     Dosage: 200 MG, TID
     Route: 048
     Dates: start: 20141005, end: 20150507
  21. FOSCAVIR [Concomitant]
     Active Substance: FOSCARNET SODIUM
     Dosage: 1.8 BID
     Route: 042
     Dates: start: 20150424, end: 20150507
  22. ANTHROBIN P [Concomitant]
     Active Substance: ANTITHROMBIN III HUMAN
     Indication: DISSEMINATED INTRAVASCULAR COAGULATION
     Dosage: 1.5 THOUSAND-MILLION UNIT, QD
     Route: 042
     Dates: start: 20150409, end: 20150413
  23. ANTHROBIN P [Concomitant]
     Active Substance: ANTITHROMBIN III HUMAN
     Dosage: 1.5 THOUSAND-MILLION UNIT, QD
     Route: 042
     Dates: start: 20150502, end: 20150504
  24. ZOSYN [Concomitant]
     Active Substance: PIPERACILLIN SODIUM\TAZOBACTAM SODIUM
     Indication: BACTERIAL INFECTION
     Dosage: 4.5 G, TID
     Route: 042
     Dates: start: 20150409, end: 20150507
  25. CANCIDAS [Suspect]
     Active Substance: CASPOFUNGIN ACETATE
     Indication: FUNGAL INFECTION
     Dosage: 50 MG, QD
     Route: 041
     Dates: start: 20150408, end: 20150507

REACTIONS (4)
  - Respiratory failure [Fatal]
  - Graft versus host disease [Fatal]
  - Bacterial infection [Fatal]
  - Renal failure [Fatal]

NARRATIVE: CASE EVENT DATE: 20150409
